FAERS Safety Report 19471365 (Version 1)
Quarter: 2021Q2

REPORT INFORMATION
  Report Type: Spontaneous
  Country: US (occurrence: US)
  Receive Date: 20210628
  Receipt Date: 20210628
  Transmission Date: 20210717
  Serious: No
  Sender: FDA-Public Use
  Company Number: US-TEVA-2021-US-1926857

PATIENT
  Age: 62 Year
  Sex: Female

DRUGS (1)
  1. CLONIDINE ACTAVIS [Suspect]
     Active Substance: CLONIDINE
     Indication: HYPERTENSION
     Dosage: 2 TABLETS A DAY
     Route: 065

REACTIONS (4)
  - Oral disorder [Unknown]
  - Dry mouth [Unknown]
  - Tremor [Unknown]
  - Dry throat [Unknown]

NARRATIVE: CASE EVENT DATE: 2021
